FAERS Safety Report 7422578-6 (Version None)
Quarter: 2011Q2

REPORT INFORMATION
  Report Type: 
  Country: None (occurrence: None)
  Receive Date: 20110419
  Receipt Date: 20110407
  Transmission Date: 20111010
  Serious: Yes (Other)
  Sender: FDA-Public Use
  Company Number: US-JNJFOC-20110403793

PATIENT
  Sex: Male
  Weight: 99.79 kg

DRUGS (7)
  1. DURAGESIC [Suspect]
     Indication: MYOPATHY
     Route: 062
  2. DITROPAN XL [Concomitant]
     Indication: BLADDER SPASM
     Route: 048
  3. OXYCODONE [Concomitant]
     Indication: PAIN
     Dosage: AS NEEDED EVERY 4-6 HOURS
     Route: 048
  4. NEURONTIN [Concomitant]
     Indication: PAIN
     Route: 048
  5. DILAUDID [Concomitant]
     Indication: PAIN
     Dosage: AS NEEDED
     Route: 048
  6. DURAGESIC [Suspect]
     Route: 062
  7. MACRODANTIN [Concomitant]
     Indication: NEUROGENIC BLADDER
     Route: 048

REACTIONS (16)
  - RIB FRACTURE [None]
  - ABNORMAL LOSS OF WEIGHT [None]
  - DYSPHAGIA [None]
  - INSOMNIA [None]
  - PRODUCT QUALITY ISSUE [None]
  - CONTUSION [None]
  - DRUG EFFECT INCREASED [None]
  - AMNESIA [None]
  - NEURALGIA [None]
  - BODY HEIGHT DECREASED [None]
  - DEPRESSION [None]
  - FALL [None]
  - NEPHROLITHIASIS [None]
  - DECREASED APPETITE [None]
  - HAEMATURIA [None]
  - BALANCE DISORDER [None]
